FAERS Safety Report 22523831 (Version 2)
Quarter: 2023Q2

REPORT INFORMATION
  Report Type: Spontaneous
  Country: US (occurrence: US)
  Receive Date: 20230606
  Receipt Date: 20230609
  Transmission Date: 20230721
  Serious: No
  Sender: FDA-Public Use
  Company Number: US-ELI_LILLY_AND_COMPANY-US202306001302

PATIENT
  Age: 65 Year
  Sex: Female

DRUGS (7)
  1. TALTZ [Suspect]
     Active Substance: IXEKIZUMAB
     Indication: Ankylosing spondylitis
     Dosage: UNK UNK, MONTHLY (1/M)
     Route: 065
     Dates: start: 2021
  2. TALTZ [Suspect]
     Active Substance: IXEKIZUMAB
     Indication: Ankylosing spondylitis
     Dosage: UNK UNK, MONTHLY (1/M)
     Route: 065
     Dates: start: 2021
  3. TALTZ [Suspect]
     Active Substance: IXEKIZUMAB
     Indication: Ankylosing spondylitis
     Dosage: UNK UNK, MONTHLY (1/M)
     Route: 065
     Dates: start: 2021
  4. TALTZ [Suspect]
     Active Substance: IXEKIZUMAB
     Dosage: UNK UNK, MONTHLY (1/M)
     Route: 065
  5. TALTZ [Suspect]
     Active Substance: IXEKIZUMAB
     Dosage: UNK UNK, MONTHLY (1/M)
     Route: 065
  6. TALTZ [Suspect]
     Active Substance: IXEKIZUMAB
     Dosage: 80 MG, OTHER (EVERY 4 WEEKS)
     Route: 065
  7. TALTZ [Suspect]
     Active Substance: IXEKIZUMAB
     Dosage: 80 MG, OTHER (EVERY 4 WEEKS)
     Route: 065

REACTIONS (5)
  - Back pain [Not Recovered/Not Resolved]
  - Wrong technique in product usage process [Unknown]
  - Injection site swelling [Unknown]
  - Injection site haemorrhage [Unknown]
  - Injection site pain [Unknown]

NARRATIVE: CASE EVENT DATE: 20230501
